FAERS Safety Report 12647259 (Version 1)
Quarter: 2016Q3

REPORT INFORMATION
  Report Type: Spontaneous
  Country: US (occurrence: US)
  Receive Date: 20160812
  Receipt Date: 20160812
  Transmission Date: 20161109
  Serious: Yes (Other)
  Sender: FDA-Public Use
  Company Number: US-LUPIN PHARMACEUTICALS INC.-2016-03411

PATIENT
  Sex: Female

DRUGS (1)
  1. DOXYCYCLINE 100MG ORAL CAPSULES USP [Suspect]
     Active Substance: DOXYCYCLINE
     Indication: CHRONIC RESPIRATORY DISEASE
     Route: 048

REACTIONS (1)
  - Blindness [Unknown]
